FAERS Safety Report 6213194-2 (Version None)
Quarter: 2009Q2

REPORT INFORMATION
  Report Type: 
  Country: None (occurrence: None)
  Receive Date: 20090601
  Receipt Date: 20090518
  Transmission Date: 20091009
  Serious: Yes (Death)
  Sender: FDA-Public Use
  Company Number: 2009-01968

PATIENT
  Age: 71 Year
  Sex: Male
  Weight: 89.3 kg

DRUGS (6)
  1. VELCADE [Suspect]
     Indication: MULTIPLE MYELOMA
     Dates: end: 20090421
  2. THALIDOMIDE [Suspect]
     Indication: MULTIPLE MYELOMA
     Dosage: 50 MG
  3. REVLIMID [Suspect]
     Indication: MULTIPLE MYELOMA
  4. DOXIL [Suspect]
     Indication: MULTIPLE MYELOMA
  5. PREDNISONE TAB [Suspect]
     Indication: MULTIPLE MYELOMA
  6. DEXAMETHASONE [Suspect]
     Indication: MULTIPLE MYELOMA

REACTIONS (9)
  - BALANCE DISORDER [None]
  - BLOOD PRESSURE SYSTOLIC INCREASED [None]
  - BODY TEMPERATURE DECREASED [None]
  - DISEASE PROGRESSION [None]
  - HAEMOGLOBIN DECREASED [None]
  - MULTIPLE MYELOMA [None]
  - PLATELET COUNT DECREASED [None]
  - RESPIRATORY RATE INCREASED [None]
  - WHITE BLOOD CELL COUNT DECREASED [None]
